FAERS Safety Report 6122969-X (Version None)
Quarter: 2009Q1

REPORT INFORMATION
  Report Type: 
  Country: None (occurrence: None)
  Receive Date: 20090318
  Receipt Date: 20080313
  Transmission Date: 20090719
  Serious: No
  Sender: FDA-Public Use
  Company Number: US-AMGEN-US269529

PATIENT
  Sex: Female

DRUGS (5)
  1. NEULASTA [Suspect]
     Indication: CHEMOTHERAPY
     Route: 065
     Dates: start: 20080214
  2. CARBOPLATIN [Concomitant]
     Route: 065
     Dates: start: 20080213
  3. VINCRISTINE [Concomitant]
     Route: 065
     Dates: start: 20080213
  4. ADRIAMYCIN RDF [Concomitant]
     Route: 065
     Dates: start: 20080213
  5. CYTOXAN [Concomitant]
     Route: 065
     Dates: start: 20080213

REACTIONS (1)
  - PYREXIA [None]
